FAERS Safety Report 24375543 (Version 1)
Quarter: 2024Q3

REPORT INFORMATION
  Report Type: Spontaneous
  Country: US (occurrence: US)
  Receive Date: 20240928
  Receipt Date: 20240928
  Transmission Date: 20241016
  Serious: Yes (Hospitalization, Other)
  Sender: MICRO LABS
  Company Number: US-862174955-ML2024-05055

PATIENT
  Age: 35 Year
  Sex: Male

DRUGS (1)
  1. SEVELAMER [Suspect]
     Active Substance: SEVELAMER
     Indication: End stage renal disease
     Dosage: STARTED 1 MONTH BEFORE THE SYMPTOM ONSET.

REACTIONS (3)
  - Ischaemic enteritis [Recovered/Resolved]
  - Haematochezia [Recovered/Resolved]
  - Mucosal necrosis [Recovered/Resolved]
